FAERS Safety Report 10168788 (Version 2)
Quarter: 2014Q2

REPORT INFORMATION
  Report Type: Spontaneous
  Country: US (occurrence: US)
  Receive Date: 20140513
  Receipt Date: 20140627
  Transmission Date: 20141212
  Serious: No
  Sender: FDA-Public Use
  Company Number: US-009507513-1405USA004235

PATIENT
  Sex: 0
  Weight: 61.22 kg

DRUGS (2)
  1. NEXPLANON [Suspect]
     Dosage: ONE ROD INSERTED, EVERY THREE YEARS
     Route: 059
     Dates: start: 20140501, end: 20140501
  2. NEXPLANON [Suspect]
     Dosage: ONE ROD INSERTED, EVERY THREE YEARS
     Route: 059
     Dates: start: 20140501

REACTIONS (1)
  - Device difficult to use [Recovered/Resolved]
